FAERS Safety Report 9697040 (Version 2)
Quarter: 2014Q1

REPORT INFORMATION
  Report Type: Spontaneous
  Country: US (occurrence: US)
  Receive Date: 20131120
  Receipt Date: 20140131
  Transmission Date: 20141002
  Serious: Yes (Other)
  Sender: FDA-Public Use
  Company Number: US-PFIZER INC-2013326369

PATIENT
  Age: 64 Year
  Sex: Female
  Weight: 72.56 kg

DRUGS (7)
  1. LYRICA [Suspect]
     Indication: NERVE INJURY
     Dosage: 100 MG, 3X/DAY
     Route: 048
     Dates: start: 2006
  2. METFORMIN ER [Concomitant]
     Indication: TYPE 2 DIABETES MELLITUS
     Dosage: 500MG 2 IN MORNING AND ONE IN EVENING
  3. METHADONE [Concomitant]
     Dosage: 20 MG (AS 2 TABLETS OF 10MG), 2X/DAY
  4. CYMBALTA [Concomitant]
     Dosage: 60 MG, 1X/DAY
     Route: 048
  5. ZONISAMIDE [Concomitant]
     Dosage: 50 MG, 1X/DAY
  6. METAXALONE [Concomitant]
     Indication: MUSCLE SPASMS
     Dosage: 800 MG, AS NEEDED
  7. AMITRIPTYLINE [Concomitant]
     Dosage: 20 MG (AS 2 TABLETS OF 10MG), 1X/DAY (AT BED TIME)
     Route: 048

REACTIONS (8)
  - Off label use [Unknown]
  - Fall [Recovering/Resolving]
  - Foot fracture [Recovering/Resolving]
  - Orthostatic hypotension [Unknown]
  - Dysstasia [Unknown]
  - Drug effect incomplete [Unknown]
  - Pain [Unknown]
  - Dizziness [Unknown]
